FAERS Safety Report 6740705-0 (Version None)
Quarter: 2010Q2

REPORT INFORMATION
  Report Type: 
  Country: None (occurrence: None)
  Receive Date: 20100521
  Receipt Date: 20100508
  Transmission Date: 20101027
  Serious: Yes (Disabling)
  Sender: FDA-Public Use
  Company Number: IN-1181516

PATIENT
  Age: 60 Year
  Sex: Female

DRUGS (3)
  1. VIGAMOX (MOXIFLOXACIN HYDROCHLORIDE ) 0.5% OPHTHALMIC SUSPENSION LOT# [Suspect]
     Dosage: 0.1ML VIA INTRACAMERAL INJECTION
     Route: 031
     Dates: start: 20100330, end: 20100330
  2. HYDROXYPROPYL METHYLCELLULOSE (HYPROMELLOSE) [Concomitant]
  3. XYLOCAINE [Concomitant]

REACTIONS (2)
  - CORNEAL OEDEMA [None]
  - VISUAL ACUITY REDUCED [None]
